FAERS Safety Report 4100142 (Version 3)
Quarter: 2020Q3

REPORT INFORMATION
  Report Type: Report from Study
  Country: US (occurrence: US)
  Receive Date: 20031226
  Receipt Date: 20050309
  Transmission Date: 20201105
  Serious: Yes (Hospitalization)
  Sender: FDA-Public Use
  Company Number: US-JNJFOC-20031203760

PATIENT
  Age: 61 Year
  Sex: Male

DRUGS (28)
  1. TREXALL [Concomitant]
     Active Substance: METHOTREXATE SODIUM
     Indication: PSORIASIS
     Route: 049
  2. VITAMIN C [Concomitant]
     Active Substance: ASCORBIC ACID
     Indication: VITAMIN SUPPLEMENTATION
     Route: 049
  3. ERGOCALCIFEROL. [Concomitant]
     Active Substance: ERGOCALCIFEROL
     Indication: VITAMIN SUPPLEMENTATION
     Route: 049
  4. CENTRUM SILVER [Concomitant]
     Active Substance: MINERALS\VITAMINS
     Route: 049
  5. CENTRUM SILVER [Concomitant]
     Active Substance: MINERALS\VITAMINS
     Route: 049
  6. TOPROL XL [Concomitant]
     Active Substance: METOPROLOL SUCCINATE
     Indication: HYPERTENSION
     Route: 049
  7. NORVASC [Concomitant]
     Active Substance: AMLODIPINE BESYLATE
     Indication: HYPERTENSION
     Route: 049
  8. MONOPRIL [Concomitant]
     Active Substance: FOSINOPRIL SODIUM
     Indication: HYPERTENSION
     Route: 049
  9. VITAMIN E [Concomitant]
     Active Substance: .ALPHA.-TOCOPHEROL
     Indication: VITAMIN SUPPLEMENTATION
     Route: 049
  10. CENTRUM SILVER [Concomitant]
     Active Substance: MINERALS\VITAMINS
     Route: 049
  11. CENTRUM SILVER [Concomitant]
     Active Substance: MINERALS\VITAMINS
     Indication: VITAMIN SUPPLEMENTATION
     Route: 049
  12. BEXTRA [Concomitant]
     Active Substance: VALDECOXIB
     Route: 049
  13. INFLIXIMAB [Suspect]
     Active Substance: INFLIXIMAB
     Route: 042
  14. ECOTRIN [Concomitant]
     Active Substance: ASPIRIN
     Indication: PROPHYLAXIS
     Route: 049
  15. HYDROCODONE [Concomitant]
     Active Substance: HYDROCODONE
     Indication: BACK PAIN
     Route: 049
  16. INFLIXIMAB [Suspect]
     Active Substance: INFLIXIMAB
     Route: 042
  17. INFLIXIMAB [Suspect]
     Active Substance: INFLIXIMAB
     Route: 042
  18. CENTRUM SILVER [Concomitant]
     Active Substance: MINERALS\VITAMINS
     Route: 049
  19. CENTRUM SILVER [Concomitant]
     Active Substance: MINERALS\VITAMINS
     Route: 049
  20. AMBIEN [Concomitant]
     Active Substance: ZOLPIDEM TARTRATE
     Indication: INSOMNIA
     Route: 049
  21. NEURONTIN [Concomitant]
     Active Substance: GABAPENTIN
     Indication: NEUROPATHY PERIPHERAL
     Route: 049
  22. FOLIC ACID. [Concomitant]
     Active Substance: FOLIC ACID
     Dosage: 2 MG ON METHOTREXATE DAYS
     Route: 049
  23. CENTRUM SILVER [Concomitant]
     Active Substance: MINERALS\VITAMINS
     Route: 049
  24. METHADONE HYDROCHLORIDE. [Concomitant]
     Active Substance: METHADONE HYDROCHLORIDE
     Indication: PAIN
     Route: 049
  25. INFLIXIMAB [Suspect]
     Active Substance: INFLIXIMAB
     Route: 042
  26. VITAMIN A + D [ERGOCALCIFEROL\RETINOL] [Concomitant]
     Active Substance: ERGOCALCIFEROL\RETINOL
     Route: 049
  27. CENTRUM SILVER [Concomitant]
     Active Substance: MINERALS\VITAMINS
     Route: 049
  28. HYDROCODONE [Concomitant]
     Active Substance: HYDROCODONE
     Route: 049

REACTIONS (6)
  - Chest pain [None]
  - Arthritis [Recovered/Resolved]
  - Aortic valve incompetence [None]
  - Endocarditis [None]
  - Ventricular dysfunction [None]
  - Mitral valve incompetence [None]

NARRATIVE: CASE EVENT DATE: 20031201
